FAERS Safety Report 12305658 (Version 1)
Quarter: 2016Q2

REPORT INFORMATION
  Report Type: Spontaneous
  Country: NL (occurrence: NL)
  Receive Date: 20160426
  Receipt Date: 20160426
  Transmission Date: 20160902
  Serious: Yes (Hospitalization)
  Sender: FDA-Public Use
  Company Number: NL-PFIZER INC-2016229800

PATIENT
  Age: 74 Year
  Sex: Male

DRUGS (1)
  1. AMIODARONE HCL [Suspect]
     Active Substance: AMIODARONE HYDROCHLORIDE
     Dosage: UNK
     Route: 048
     Dates: start: 20160216

REACTIONS (5)
  - Dysgeusia [Unknown]
  - Visual acuity reduced [Unknown]
  - Skin bacterial infection [Unknown]
  - Nightmare [Unknown]
  - Streptococcal infection [Unknown]

NARRATIVE: CASE EVENT DATE: 20160216
